FAERS Safety Report 13392539 (Version 2)
Quarter: 2017Q2

REPORT INFORMATION
  Report Type: Spontaneous
  Country: AU (occurrence: AU)
  Receive Date: 20170331
  Receipt Date: 20170602
  Transmission Date: 20170830
  Serious: Yes (Other)
  Sender: FDA-Public Use
  Company Number: AU-AMGEN-AUSSP2015084777

PATIENT
  Age: 74 Year
  Sex: Female

DRUGS (9)
  1. NEXIUM [Concomitant]
     Active Substance: ESOMEPRAZOLE MAGNESIUM
  2. PROLIA [Suspect]
     Active Substance: DENOSUMAB
     Indication: OSTEOPOROSIS
  3. CALCIUM [Concomitant]
     Active Substance: CALCIUM
  4. PROLIA [Suspect]
     Active Substance: DENOSUMAB
     Indication: OSTEOPOROSIS
     Dosage: UNK
     Route: 065
     Dates: start: 2012
  5. VITAMIN D [Concomitant]
     Active Substance: CHOLECALCIFEROL
  6. OROXIN [Concomitant]
     Dosage: 15 MG, UNK
  7. AVAPRO [Concomitant]
     Active Substance: IRBESARTAN
     Dosage: UNK UNK, QOD
  8. ENDEP [Concomitant]
     Active Substance: AMITRIPTYLINE HYDROCHLORIDE
     Dosage: UNK UNK, QD
  9. CALTRATE [Concomitant]
     Active Substance: CALCIUM CARBONATE
     Dosage: 600 MG, UNK

REACTIONS (12)
  - Pain in jaw [Unknown]
  - Intentional product misuse [Unknown]
  - Dementia [Unknown]
  - Vision blurred [Unknown]
  - Influenza [Recovered/Resolved]
  - Drug dose omission [Unknown]
  - Fatigue [Unknown]
  - Feeling hot [Unknown]
  - Drug effect incomplete [Unknown]
  - Peripheral coldness [Recovered/Resolved]
  - Blood cholesterol increased [Unknown]
  - Body temperature increased [Unknown]

NARRATIVE: CASE EVENT DATE: 201507
